FAERS Safety Report 15200489 (Version 1)
Quarter: 2018Q3

REPORT INFORMATION
  Report Type: Spontaneous
  Country: GB (occurrence: GB)
  Receive Date: 20180726
  Receipt Date: 20180726
  Transmission Date: 20181010
  Serious: Yes (Other)
  Sender: FDA-Public Use
  Company Number: GB-TEVA-2018-GB-930666

PATIENT
  Age: 85 Year
  Sex: Female
  Weight: 64 kg

DRUGS (16)
  1. FERROUS SULFATE. [Concomitant]
     Active Substance: FERROUS SULFATE
     Dosage: 2 DOSAGE FORMS DAILY;
     Route: 065
     Dates: start: 20170901
  2. COCODAMOL [Concomitant]
     Active Substance: ACETAMINOPHEN\CODEINE PHOSPHATE
     Dosage: TAKE ONE OR TWO FOUR TIMES DAILY
     Route: 065
     Dates: start: 20180419
  3. BISOPROLOL [Concomitant]
     Active Substance: BISOPROLOL
     Dosage: 1 DOSAGE FORMS DAILY;
     Route: 065
     Dates: start: 20151208
  4. MORPHINE SULFATE. [Concomitant]
     Active Substance: MORPHINE SULFATE
     Dosage: IN ADDITION TO YOUR NORMAL PAIN KILLERS USE AS NEEDED OR EVERY 4?6 HOURS
     Route: 065
     Dates: start: 20180621
  5. KETOPROFEN. [Concomitant]
     Active Substance: KETOPROFEN
     Dosage: APPLY THREE TIMES.
     Route: 065
     Dates: start: 20160815
  6. ZAPAIN [Concomitant]
     Active Substance: ACETAMINOPHEN\CODEINE PHOSPHATE
     Dosage: TAKE ONE OR TWO FOUR TIMES DAILY.
     Route: 065
     Dates: start: 20170626, end: 20180419
  7. LACTULOSE. [Concomitant]
     Active Substance: LACTULOSE
     Dosage: TAKE 10?15ML TWICE A DAY
     Route: 065
     Dates: start: 20170626
  8. APIXABAN [Concomitant]
     Active Substance: APIXABAN
     Dosage: 2 DOSAGE FORMS DAILY;
     Route: 065
     Dates: start: 20171009
  9. BUPRENORPHINE. [Suspect]
     Active Substance: BUPRENORPHINE
     Route: 062
     Dates: start: 20180412
  10. FLUCLOXACILLIN [Concomitant]
     Active Substance: FLUCLOXACILLIN
     Indication: ANTIBIOTIC THERAPY
     Dosage: 4 DOSAGE FORMS DAILY;
     Route: 065
     Dates: start: 20180412, end: 20180419
  11. DOXAZOSIN [Concomitant]
     Active Substance: DOXAZOSIN\DOXAZOSIN MESYLATE
     Indication: HYPERTENSION
     Dosage: 1 DOSAGE FORMS DAILY;
     Route: 065
     Dates: start: 20151208
  12. AMOROLFINE [Concomitant]
     Active Substance: AMOROLFINE
     Route: 065
     Dates: start: 20180614
  13. VALSARTAN. [Concomitant]
     Active Substance: VALSARTAN
     Dosage: 1 DOSAGE FORMS DAILY;
     Route: 065
     Dates: start: 20151208
  14. FUROSEMIDE. [Concomitant]
     Active Substance: FUROSEMIDE
     Dosage: 1 DOSAGE FORMS DAILY; EACH MORNING
     Dates: start: 20151208
  15. MACROGOL [Concomitant]
     Active Substance: POLYETHYLENE GLYCOLS
     Dosage: 1 DOSAGE FORMS DAILY; USE WHILST ON CO?CODAMOL.
     Route: 065
     Dates: start: 20180531, end: 20180601
  16. CETIRIZINE [Concomitant]
     Active Substance: CETIRIZINE HYDROCHLORIDE
     Indication: HYPERSENSITIVITY
     Dosage: ONE EACH DAY.
     Route: 065
     Dates: start: 20180412, end: 20180510

REACTIONS (1)
  - Dermatitis allergic [Recovered/Resolved]

NARRATIVE: CASE EVENT DATE: 20180622
